FAERS Safety Report 19806372 (Version 1)
Quarter: 2021Q3

REPORT INFORMATION
  Report Type: Other
  Country: None (occurrence: CA)
  Receive Date: 20210909
  Receipt Date: 20210909
  Transmission Date: 20211014
  Serious: No
  Sender: FDA-Public Use
  Company Number: CA-TOLMAR, INC.-21CA029542

PATIENT
  Age: 81 Year
  Sex: Male

DRUGS (2)
  1. ELIGARD [Suspect]
     Active Substance: LEUPROLIDE ACETATE
     Indication: PROSTATE CANCER
     Dosage: 45 MILLIGRAM, Q 6 MONTH
     Route: 058
     Dates: start: 20150302
  2. ELIGARD [Suspect]
     Active Substance: LEUPROLIDE ACETATE
     Dosage: 45 MILLIGRAM, Q 6 MONTH
     Route: 058
     Dates: start: 20210806

REACTIONS (5)
  - Nausea [Unknown]
  - Asthenia [Unknown]
  - Injection site pain [Unknown]
  - Chronic obstructive pulmonary disease [Unknown]
  - Insomnia [Unknown]

NARRATIVE: CASE EVENT DATE: 20210806
